FAERS Safety Report 13035453 (Version 1)
Quarter: 2016Q4

REPORT INFORMATION
  Report Type: Spontaneous
  Country: CN (occurrence: CN)
  Receive Date: 20161216
  Receipt Date: 20161216
  Transmission Date: 20170207
  Serious: Yes (Other)
  Sender: FDA-Public Use
  Company Number: CN-PFIZER INC-2016581316

PATIENT
  Age: 54 Year
  Sex: Male
  Weight: 100 kg

DRUGS (11)
  1. MIDAZOLAM [Concomitant]
     Active Substance: MIDAZOLAM\MIDAZOLAM HYDROCHLORIDE
     Dosage: UNK
     Dates: start: 20161128, end: 20161212
  2. MEROPENEM. [Concomitant]
     Active Substance: MEROPENEM
     Dosage: UNK
     Dates: start: 20161129, end: 20161202
  3. PIPERACILLIN [Concomitant]
     Active Substance: PIPERACILLIN
     Dosage: UNK
     Dates: start: 20161206
  4. SOLU-MEDROL [Concomitant]
     Active Substance: METHYLPREDNISOLONE SODIUM SUCCINATE
     Dosage: UNK
     Dates: start: 20161209
  5. PROPOFOL. [Concomitant]
     Active Substance: PROPOFOL
     Dosage: UNK
     Dates: start: 20161128, end: 20161212
  6. OMEPRAZOLE. [Concomitant]
     Active Substance: OMEPRAZOLE
     Dosage: UNK
     Dates: start: 20161130, end: 20161213
  7. MOXIFLOXACIN. [Concomitant]
     Active Substance: MOXIFLOXACIN
     Dosage: UNK
     Dates: start: 20161129, end: 20161206
  8. ZYVOX [Suspect]
     Active Substance: LINEZOLID
     Dosage: UNK
     Dates: start: 20161130, end: 20161212
  9. OLANZAPINE. [Suspect]
     Active Substance: OLANZAPINE
     Dosage: 0.25 TABLET, UNK
     Route: 048
  10. ULINASTATIN [Concomitant]
     Active Substance: ULINASTATIN
     Dosage: UNK
     Dates: start: 20161130, end: 20161207
  11. SULBACTAM [Concomitant]
     Active Substance: SULBACTAM
     Dosage: UNK
     Dates: start: 20161206

REACTIONS (1)
  - Delirium [Recovering/Resolving]

NARRATIVE: CASE EVENT DATE: 20161212
